FAERS Safety Report 12809292 (Version 1)
Quarter: 2016Q4

REPORT INFORMATION
  Report Type: Spontaneous
  Country: FR (occurrence: FR)
  Receive Date: 20161004
  Receipt Date: 20161004
  Transmission Date: 20170207
  Serious: Yes (Hospitalization, Other)
  Sender: FDA-Public Use
  Company Number: FR-BAXTER-2016BAX049290

PATIENT
  Age: 45 Year
  Sex: Male

DRUGS (10)
  1. HOLOXAN 2000 MG, POUDRE POUR USAGE PARENT?RAL [Suspect]
     Active Substance: IFOSFAMIDE
     Indication: NEOPLASM PROGRESSION
     Dosage: FIRST COURSE, PROTOCOL VEIP
     Route: 065
     Dates: start: 20151228
  2. VINBLASTINE [Suspect]
     Active Substance: VINBLASTINE
     Indication: NEOPLASM PROGRESSION
     Dosage: FIRST COURSE, PROTOCOL VEIP
     Route: 065
     Dates: start: 20151228
  3. CISPLATIN. [Suspect]
     Active Substance: CISPLATIN
     Dosage: SECOND COURSE, PROTOCOL VEIP
     Route: 065
     Dates: start: 20160118
  4. CELLTOP 100 MG/5 ML, SOLUTION INJECTABLE POUR PERFUSION [Suspect]
     Active Substance: ETOPOSIDE
     Indication: TESTICULAR SEMINOMA (PURE)
     Dosage: 4 COURSES
     Route: 065
  5. CARBOPLATINE [Suspect]
     Active Substance: CARBOPLATIN
     Indication: PRODUCT USED FOR UNKNOWN INDICATION
     Dosage: HIGH DOSE
     Route: 042
     Dates: start: 20160209
  6. CISPLATIN. [Suspect]
     Active Substance: CISPLATIN
     Indication: NEOPLASM PROGRESSION
     Dosage: FIRST COURSE, PROTOCOL VEIP
     Route: 065
     Dates: start: 20151228
  7. CELLTOP 25 MG, CAPSULE [Suspect]
     Active Substance: ETOPOSIDE
     Indication: PRODUCT USED FOR UNKNOWN INDICATION
     Dosage: HIGH DOSE
     Route: 048
     Dates: start: 20160209
  8. HOLOXAN 2000 MG, POUDRE POUR USAGE PARENT?RAL [Suspect]
     Active Substance: IFOSFAMIDE
     Dosage: SECOND COURSE, PROTOCOL VEIP
     Route: 065
     Dates: start: 20160118
  9. CARBOPLATIN. [Suspect]
     Active Substance: CARBOPLATIN
     Indication: TESTICULAR SEMINOMA (PURE)
     Dosage: 4 COURSES
     Route: 065
  10. VINBLASTINE [Suspect]
     Active Substance: VINBLASTINE
     Dosage: SECOND COURSE, PROTOCOL VEIP
     Route: 065
     Dates: start: 20160118

REACTIONS (10)
  - Hepatosplenic candidiasis [Unknown]
  - Candida retinitis [Unknown]
  - Aplasia [Recovered/Resolved]
  - Bacteraemia [Unknown]
  - Neoplasm progression [Not Recovered/Not Resolved]
  - Fungal infection [Unknown]
  - Atrial thrombosis [Unknown]
  - Metastases to lymph nodes [Unknown]
  - Candida sepsis [Recovered/Resolved]
  - Graft infection [Unknown]

NARRATIVE: CASE EVENT DATE: 201509
